FAERS Safety Report 5851639-8 (Version None)
Quarter: 2008Q3

REPORT INFORMATION
  Report Type: 
  Country: None (occurrence: None)
  Receive Date: 20080820
  Receipt Date: 20080812
  Transmission Date: 20090109
  Serious: Yes (Hospitalization)
  Sender: FDA-Public Use
  Company Number: US-ELI_LILLY_AND_COMPANY-US200808002501

PATIENT
  Age: 47 Year
  Sex: Male

DRUGS (2)
  1. HUMULIN R [Suspect]
     Dosage: UNK, UNK
     Dates: start: 20080401
  2. HUMALOG [Suspect]

REACTIONS (5)
  - CARDIAC DISORDER [None]
  - DIABETIC COMPLICATION [None]
  - IMPAIRED GASTRIC EMPTYING [None]
  - NEUROPATHY PERIPHERAL [None]
  - WRONG DRUG ADMINISTERED [None]
